FAERS Safety Report 8444408-6 (Version None)
Quarter: 2012Q2

REPORT INFORMATION
  Report Type: 
  Country: None (occurrence: None)
  Receive Date: 20120618
  Receipt Date: 20120614
  Transmission Date: 20120825
  Serious: Yes (Hospitalization)
  Sender: FDA-Public Use
  Company Number: US-ELI_LILLY_AND_COMPANY-US201206000458

PATIENT
  Sex: Male
  Weight: 72.562 kg

DRUGS (1)
  1. EFFIENT [Suspect]
     Dosage: UNK
     Dates: start: 20120412

REACTIONS (2)
  - NON-CARDIAC CHEST PAIN [None]
  - PALPITATIONS [None]
